FAERS Safety Report 17841120 (Version 1)
Quarter: 2020Q2

REPORT INFORMATION
  Report Type: Spontaneous
  Country: US (occurrence: US)
  Receive Date: 20200529
  Receipt Date: 20200529
  Transmission Date: 20200714
  Serious: No
  Sender: FDA-Public Use
  Company Number: US-PFIZER INC-2019434958

PATIENT
  Age: 65 Year
  Sex: Male
  Weight: 62.13 kg

DRUGS (3)
  1. METHOTREXATE. [Concomitant]
     Active Substance: METHOTREXATE
     Dosage: UNK
     Dates: start: 2002
  2. ENBREL [Concomitant]
     Active Substance: ETANERCEPT
  3. XELJANZ XR [Suspect]
     Active Substance: TOFACITINIB CITRATE
     Indication: RHEUMATIC DISORDER
     Dosage: 11 MG, 1X/DAY
     Dates: start: 2015

REACTIONS (2)
  - Essential tremor [Unknown]
  - Condition aggravated [Unknown]
